FAERS Safety Report 8483445-2 (Version None)
Quarter: 2012Q3

REPORT INFORMATION
  Report Type: 
  Country: None (occurrence: None)
  Receive Date: 20120702
  Receipt Date: 20120627
  Transmission Date: 20120928
  Serious: Yes (Other)
  Sender: FDA-Public Use
  Company Number: CA-AMGEN-CANSP2012003530

PATIENT
  Age: 64 Year
  Sex: Female
  Weight: 44.444 kg

DRUGS (1)
  1. PROLIA [Suspect]
     Indication: OSTEOPOROSIS
     Dosage: 60 MG, Q6MO
     Route: 058
     Dates: start: 20110630

REACTIONS (2)
  - POOR DENTAL CONDITION [None]
  - OSTEONECROSIS OF JAW [None]
